FAERS Safety Report 5338409-4 (Version None)
Quarter: 2007Q2

REPORT INFORMATION
  Report Type: 
  Country: None (occurrence: None)
  Receive Date: 20070530
  Receipt Date: 20070523
  Transmission Date: 20071010
  Serious: Yes (Death)
  Sender: FDA-Public Use
  Company Number: US-ELI_LILLY_AND_COMPANY-US200704001353

PATIENT
  Age: 48 Year
  Sex: Female
  Weight: 197.73 kg

DRUGS (9)
  1. BYETTA [Suspect]
     Indication: DIABETES MELLITUS NON-INSULIN-DEPENDENT
     Dosage: 5 UG, UNKNOWN
     Dates: start: 20070331
  2. BUMEX [Concomitant]
     Indication: LYMPHOEDEMA
     Dosage: 2 MG, DAILY (1/D)
     Dates: start: 20070329
  3. LASIX [Concomitant]
     Dosage: UNK, UNKNOWN
     Dates: end: 20070329
  4. SYNTHROID [Concomitant]
     Indication: THYROID DISORDER
     Dosage: 200 UG, DAILY (1/D)
  5. SPIRONOLACTONE [Concomitant]
     Indication: LYMPHOEDEMA
     Dosage: 50 MG, DAILY (1/D)
  6. POTASSIUM CHLORIDE [Concomitant]
     Dosage: 10 MEQ, DAILY (1/D)
  7. BUSPAR [Concomitant]
     Indication: ANXIETY
     Dosage: 10 MG, OTHER
     Dates: start: 20070115
  8. CYMBALTA [Concomitant]
     Indication: DEPRESSION
     Dosage: 60 MG, DAILY (1/D)
     Dates: start: 20060517
  9. REQUIP [Concomitant]
     Indication: RESTLESS LEGS SYNDROME
     Dosage: 2 MG, EACH EVENING
     Dates: start: 20061001

REACTIONS (1)
  - DEATH [None]
